FAERS Safety Report 21089026 (Version 1)
Quarter: 2022Q3

REPORT INFORMATION
  Report Type: Spontaneous
  Country: CN (occurrence: CN)
  Receive Date: 20220715
  Receipt Date: 20220715
  Transmission Date: 20221027
  Serious: Yes (Other)
  Sender: FDA-Public Use
  Company Number: CN-BAYER-2022A093668

PATIENT
  Age: 68 Year
  Sex: Female
  Weight: 66 kg

DRUGS (1)
  1. CIPROFLOXACIN [Suspect]
     Active Substance: CIPROFLOXACIN
     Indication: Anti-infective therapy
     Dosage: 0.4 G, BID
     Route: 041
     Dates: start: 20220621, end: 20220625

REACTIONS (5)
  - Drug-induced liver injury [Recovered/Resolved]
  - Atrial fibrillation [None]
  - Coma [None]
  - Blood pressure diastolic decreased [None]
  - Hepatic function abnormal [Recovered/Resolved]

NARRATIVE: CASE EVENT DATE: 20220625
